FAERS Safety Report 23222775 (Version 1)
Quarter: 2023Q4

REPORT INFORMATION
  Report Type: Spontaneous
  Country: US (occurrence: US)
  Receive Date: 20231123
  Receipt Date: 20231123
  Transmission Date: 20240110
  Serious: Yes (Hospitalization, Other)
  Sender: FDA-Public Use
  Company Number: US-Merck Healthcare KGaA-2023488068

PATIENT
  Age: 29 Year
  Sex: Female

DRUGS (1)
  1. LEVOTHYROXINE [Suspect]
     Active Substance: LEVOTHYROXINE
     Indication: Thyroid hormone replacement therapy
     Route: 048

REACTIONS (3)
  - Hypoglycaemic unconsciousness [Unknown]
  - Blood thyroid stimulating hormone increased [Unknown]
  - Treatment noncompliance [Unknown]
